FAERS Safety Report 13828769 (Version 1)
Quarter: 2017Q3

REPORT INFORMATION
  Report Type: Spontaneous
  Country: US (occurrence: US)
  Receive Date: 20170803
  Receipt Date: 20170803
  Transmission Date: 20171127
  Serious: No
  Sender: FDA-Public Use
  Company Number: US-TEVA-714480USA

PATIENT
  Age: 19 Year
  Sex: Female
  Weight: 54.03 kg

DRUGS (1)
  1. NEXT CHOICE [Suspect]
     Active Substance: LEVONORGESTREL
     Route: 065
     Dates: start: 20161116

REACTIONS (3)
  - Dysuria [Unknown]
  - Vaginal discharge [Unknown]
  - Vaginal haemorrhage [Unknown]

NARRATIVE: CASE EVENT DATE: 20161116
